FAERS Safety Report 6701533-5 (Version None)
Quarter: 2010Q2

REPORT INFORMATION
  Report Type: 
  Country: None (occurrence: None)
  Receive Date: 20100429
  Receipt Date: 20100420
  Transmission Date: 20101027
  Serious: Yes (Hospitalization)
  Sender: FDA-Public Use
  Company Number: FR-JNJFOC-20100406091

PATIENT
  Age: 26 Year
  Sex: Male

DRUGS (6)
  1. IBUPROFEN [Suspect]
     Indication: STREPTOCOCCAL INFECTION
     Route: 048
  2. IBUPROFEN [Suspect]
     Indication: TONSILLITIS
     Route: 048
  3. CEFPODOXIME PROXETIL [Suspect]
     Indication: STREPTOCOCCAL INFECTION
     Route: 048
  4. CEFPODOXIME PROXETIL [Suspect]
     Indication: TONSILLITIS
     Route: 048
  5. DOLIPRANE [Concomitant]
     Indication: STREPTOCOCCAL INFECTION
  6. DOLIPRANE [Concomitant]
     Indication: TONSILLITIS

REACTIONS (2)
  - MENINGITIS [None]
  - ROAD TRAFFIC ACCIDENT [None]
